FAERS Safety Report 6303061-8 (Version None)
Quarter: 2009Q3

REPORT INFORMATION
  Report Type: 
  Country: None (occurrence: None)
  Receive Date: 20090810
  Receipt Date: 20090728
  Transmission Date: 20100115
  Serious: No
  Sender: FDA-Public Use
  Company Number: US-BAYER-200929195NA

PATIENT
  Age: 51 Year
  Sex: Female
  Weight: 56 kg

DRUGS (6)
  1. ULTRAVIST 370 [Suspect]
     Indication: COMPUTERISED TOMOGRAM ABDOMEN
     Dosage: TOTAL DAILY DOSE: 100 ML  UNIT DOSE: 100 ML
     Route: 042
  2. ACTONEL [Concomitant]
  3. POTASSIUM CHLORIDE [Concomitant]
  4. BENICAR [Concomitant]
  5. HYDROCHLOROTHIAZIDE [Concomitant]
  6. VITAMIN D [Concomitant]

REACTIONS (1)
  - PRURITUS [None]
